FAERS Safety Report 5488118-6 (Version None)
Quarter: 2007Q4

REPORT INFORMATION
  Report Type: 
  Country: None (occurrence: None)
  Receive Date: 20071005
  Receipt Date: 20060918
  Transmission Date: 20080405
  Serious: Yes (Life-Threatening, Other)
  Sender: FDA-Public Use
  Company Number: PHEH2006US10425

PATIENT
  Age: 62 Year
  Sex: Female

DRUGS (11)
  1. LOPRESSOR [Suspect]
     Indication: HYPERTENSION
     Dosage: 25 MG, BID, ORAL
     Route: 048
     Dates: start: 20060725, end: 20060809
  2. PACERONE [Suspect]
     Indication: CARDIAC FAILURE CONGESTIVE
     Dosage: 800 MG QD, ORAL; 200 MG QD
     Route: 048
     Dates: start: 20060727, end: 20060809
  3. PACERONE [Suspect]
     Indication: CARDIAC FAILURE CONGESTIVE
     Dosage: 800 MG QD, ORAL; 200 MG QD
     Route: 048
     Dates: start: 20060810
  4. PRILOSEC [Concomitant]
  5. WARFARIN SODIUM [Concomitant]
  6. ZOLOFT [Concomitant]
  7. LANTUS [Concomitant]
  8. HUMALOG [Concomitant]
  9. ALEVE [Concomitant]
  10. IBUPROFEN [Concomitant]
  11. SYNTHROID [Concomitant]

REACTIONS (2)
  - HALLUCINATION [None]
  - INSOMNIA [None]
